FAERS Safety Report 4955225-3 (Version None)
Quarter: 2006Q1

REPORT INFORMATION
  Report Type: 
  Country: None (occurrence: None)
  Receive Date: 20060322
  Receipt Date: 20060314
  Transmission Date: 20060701
  Serious: Yes (Death)
  Sender: FDA-Public Use
  Company Number: 163-21880-06020386

PATIENT
  Age: 73 Year
  Sex: Male

DRUGS (2)
  1. REVLIMID [Suspect]
     Indication: MULTIPLE MYELOMA
     Dosage: 25 MG, DAILY, ORAL
     Route: 048
     Dates: start: 20060203, end: 20060205
  2. REVLIMID [Suspect]

REACTIONS (2)
  - INFECTION IN AN IMMUNOCOMPROMISED HOST [None]
  - PNEUMONIA [None]
